FAERS Safety Report 8496530-6 (Version None)
Quarter: 2012Q3

REPORT INFORMATION
  Report Type: 
  Country: None (occurrence: None)
  Receive Date: 20120709
  Receipt Date: 20120703
  Transmission Date: 20120928
  Serious: Yes (Death)
  Sender: FDA-Public Use
  Company Number: US-INCYTE CORPORATION-2012IN001200

PATIENT
  Sex: Male

DRUGS (4)
  1. JAKAFI [Suspect]
     Dosage: 5 MG, BID
     Route: 048
  2. LORAZEPAM [Concomitant]
     Dosage: 0.5 MG, UNK
  3. PROMETHAZINE [Concomitant]
     Dosage: 12.5 MG, UNK
  4. NEXIUM [Concomitant]
     Dosage: 40 MG, UNK

REACTIONS (1)
  - DEATH [None]
